FAERS Safety Report 17983257 (Version 2)
Quarter: 2020Q3

REPORT INFORMATION
  Report Type: Spontaneous
  Country: US (occurrence: US)
  Receive Date: 20200706
  Receipt Date: 20200818
  Transmission Date: 20201103
  Serious: No
  Sender: FDA-Public Use
  Company Number: NVSC2020US180671

PATIENT
  Sex: Female

DRUGS (2)
  1. ESTRADIOL. [Suspect]
     Active Substance: ESTRADIOL
     Indication: PRODUCT USED FOR UNKNOWN INDICATION
     Dosage: 0.5 MG, QD
     Route: 062
     Dates: start: 202003
  2. CLIMARA [Concomitant]
     Active Substance: ESTRADIOL
     Indication: PRODUCT USED FOR UNKNOWN INDICATION
     Dosage: 0.5 MG, QD
     Route: 065

REACTIONS (8)
  - Pain in extremity [Unknown]
  - Hypertension [Unknown]
  - Oedema peripheral [Unknown]
  - Arthralgia [Unknown]
  - Hot flush [Unknown]
  - Weight increased [Unknown]
  - Headache [Unknown]
  - Product adhesion issue [Unknown]
